FAERS Safety Report 13155537 (Version 1)
Quarter: 2017Q1

REPORT INFORMATION
  Report Type: Spontaneous
  Country: US (occurrence: US)
  Receive Date: 20170126
  Receipt Date: 20170126
  Transmission Date: 20170428
  Serious: Yes (Other)
  Sender: FDA-Public Use
  Company Number: US-PFIZER INC-2017030027

PATIENT
  Age: 78 Year
  Sex: Male

DRUGS (3)
  1. ANTIPYRINE W/BENZOCAINE [Suspect]
     Active Substance: ANTIPYRINE\BENZOCAINE
     Dosage: UNK
  2. HYDROCORTISONE ACETATE. [Suspect]
     Active Substance: HYDROCORTISONE ACETATE
     Dosage: UNK
  3. METFORMIN HCL [Suspect]
     Active Substance: METFORMIN HYDROCHLORIDE
     Dosage: UNK

REACTIONS (2)
  - Adverse reaction [None]
  - Drug hypersensitivity [Unknown]
